FAERS Safety Report 7980882-7 (Version None)
Quarter: 2011Q4

REPORT INFORMATION
  Report Type: 
  Country: None (occurrence: None)
  Receive Date: 20111214
  Receipt Date: 20111201
  Transmission Date: 20120403
  Serious: Yes (Hospitalization)
  Sender: FDA-Public Use
  Company Number: FR-MYLANLABS-2011S1025071

PATIENT
  Age: 52 Year
  Sex: Male

DRUGS (4)
  1. CISPLATIN [Suspect]
     Indication: TESTICULAR CANCER METASTATIC
     Dosage: 20 MG/ME2/DAY FOR 5 DAYS
     Route: 065
  2. ETOPOSIDE [Suspect]
     Indication: TESTICULAR CANCER METASTATIC
     Dosage: 75 MG/ME2/DAY FOR 5 DAYS
     Route: 065
  3. MESNA [Suspect]
     Indication: TESTICULAR CANCER METASTATIC
     Dosage: 1200 MG/ME2/DAY
     Route: 065
  4. IFOSFAMIDE [Suspect]
     Indication: TESTICULAR CANCER METASTATIC
     Dosage: 1200 MG/ME2/DAY FOR 5 DAYS
     Route: 065

REACTIONS (3)
  - RENAL FAILURE ACUTE [None]
  - ACUTE RESPIRATORY DISTRESS SYNDROME [None]
  - RENAL TUBULAR NECROSIS [None]
